FAERS Safety Report 18717430 (Version 2)
Quarter: 2021Q1

REPORT INFORMATION
  Report Type: Report from Study
  Country: BR (occurrence: BR)
  Receive Date: 20210108
  Receipt Date: 20210119
  Transmission Date: 20210419
  Serious: Yes (Other)
  Sender: FDA-Public Use
  Company Number: NVSC2021BR001690

PATIENT
  Age: 68 Year
  Sex: Female
  Weight: 67 kg

DRUGS (1)
  1. DIOVAN HCT [Suspect]
     Active Substance: HYDROCHLOROTHIAZIDE\VALSARTAN
     Indication: HYPERTENSION
     Dosage: 1 DF, QD, START 12 YEARS AGO (SINCE 47 YEARS OLD)
     Route: 048

REACTIONS (11)
  - Blood pressure abnormal [Recovered/Resolved]
  - Fear [Not Recovered/Not Resolved]
  - Hypoaesthesia [Not Recovered/Not Resolved]
  - Blood pressure increased [Not Recovered/Not Resolved]
  - Myocardial infarction [Recovered/Resolved]
  - Malaise [Not Recovered/Not Resolved]
  - Tension [Not Recovered/Not Resolved]
  - Nervousness [Not Recovered/Not Resolved]
  - Blood pressure abnormal [Recovered/Resolved]
  - Anxiety [Not Recovered/Not Resolved]
  - Dizziness [Not Recovered/Not Resolved]

NARRATIVE: CASE EVENT DATE: 2011
